FAERS Safety Report 24557583 (Version 1)
Quarter: 2024Q4

REPORT INFORMATION
  Report Type: Spontaneous
  Country: US (occurrence: US)
  Receive Date: 20241028
  Receipt Date: 20241028
  Transmission Date: 20250114
  Serious: No
  Sender: DR REDDYS
  Company Number: US-DRL-USA-LIT/USA/24/0015846

PATIENT
  Sex: Female

DRUGS (1)
  1. IMATINIB [Suspect]
     Active Substance: IMATINIB
     Indication: Indolent systemic mastocytosis
     Dates: start: 2015

REACTIONS (2)
  - Hypertransaminasaemia [Unknown]
  - Product use in unapproved indication [Unknown]
